FAERS Safety Report 9183857 (Version 1)
Quarter: 2013Q1

REPORT INFORMATION
  Report Type: Spontaneous
  Country: US (occurrence: US)
  Receive Date: 20130322
  Receipt Date: 20130322
  Transmission Date: 20140127
  Serious: No
  Sender: FDA-Public Use
  Company Number: US-BRISTOL-MYERS SQUIBB COMPANY-16640229

PATIENT
  Age: 74 Year
  Sex: Male
  Weight: 59.86 kg

DRUGS (1)
  1. ERBITUX [Suspect]
     Indication: LYMPHOMA
     Dosage: INITIALLY STARTED DOSE 750ML; 04MAY12,11MAY12,18MAY12,25MAY12,5TH TREATMENT ON 01JUN12.
     Dates: start: 20120504

REACTIONS (7)
  - Fatigue [Unknown]
  - Rash [Unknown]
  - Oropharyngeal pain [Unknown]
  - Ageusia [Unknown]
  - Pruritus [Unknown]
  - Weight decreased [Unknown]
  - Decreased appetite [Unknown]
